FAERS Safety Report 8949436 (Version 1)
Quarter: 2012Q4

REPORT INFORMATION
  Report Type: 
  Country: US (occurrence: US)
  Receive Date: 20121206
  Receipt Date: 20121206
  Transmission Date: 20130627
  Serious: Yes (Death, Other)
  Sender: FDA-Public Use
  Company Number: US-PFIZER INC-2012304740

PATIENT
  Age: 62 Year
  Sex: Female

DRUGS (16)
  1. SUTENT [Suspect]
     Indication: MALIGNANT SOFT TISSUE NEOPLASM
     Dosage: 12.5 mg
     Dates: start: 20121121
  2. CELEXA [Concomitant]
  3. DOXYCYCLINE HYCLATE [Concomitant]
  4. HUMALOG KWIKPEN [Concomitant]
  5. HYDROCODONE W/ACETAMINOPHEN [Concomitant]
  6. LASIX [Concomitant]
  7. LEVOFLOXACIN [Concomitant]
  8. LOPRESSOR [Concomitant]
  9. LORATADINE [Concomitant]
  10. METOCLOPRAMIDE HYDROCHLORIDE [Concomitant]
  11. METOPROLOL TARTRATE [Concomitant]
  12. NOVOLOG FLEXPEN [Concomitant]
  13. PANTOPRAZOLE SODIUM [Concomitant]
  14. POTASSIUM CHLORIDE CRYS CR [Concomitant]
  15. PROMETHAZINE HYDROCHLORIDE [Concomitant]
  16. SANTYL [Concomitant]

REACTIONS (2)
  - Off label use [Fatal]
  - Death [Fatal]
